FAERS Safety Report 20168122 (Version 1)
Quarter: 2021Q4

REPORT INFORMATION
  Report Type: Spontaneous
  Country: US (occurrence: US)
  Receive Date: 20211210
  Receipt Date: 20211210
  Transmission Date: 20220303
  Serious: Yes (Other)
  Sender: FDA-Public Use
  Company Number: US-NOVOPROD-866934

PATIENT
  Sex: Male

DRUGS (8)
  1. FIASP [Suspect]
     Active Substance: INSULIN ASPART
     Dosage: 8 IU
     Route: 058
     Dates: start: 2021, end: 2021
  2. FIASP [Suspect]
     Active Substance: INSULIN ASPART
     Dosage: 10 IU
     Route: 058
     Dates: start: 2021, end: 2021
  3. FIASP [Suspect]
     Active Substance: INSULIN ASPART
     Dosage: 12 IU
     Route: 058
     Dates: start: 2021, end: 2021
  4. FIASP [Suspect]
     Active Substance: INSULIN ASPART
     Indication: Product used for unknown indication
     Dosage: 7 IU
     Route: 058
     Dates: start: 20211105, end: 2021
  5. FIASP [Suspect]
     Active Substance: INSULIN ASPART
     Dosage: UNK (EMERGENCY USE ONLY FOR SUGARS 350-300 TAKE 3-4 UNITS)
     Route: 058
  6. FIASP [Suspect]
     Active Substance: INSULIN ASPART
     Dosage: UNK
     Route: 058
  7. TRESIBA [Suspect]
     Active Substance: INSULIN DEGLUDEC
     Dosage: 8 IU
     Route: 058
  8. TRESIBA [Suspect]
     Active Substance: INSULIN DEGLUDEC
     Indication: Product used for unknown indication
     Dosage: 22 IU
     Route: 058

REACTIONS (4)
  - Atrioventricular block [Unknown]
  - Blood glucose increased [Recovered/Resolved]
  - Drug ineffective [Unknown]
  - Product quality issue [Unknown]
